FAERS Safety Report 23257005 (Version 1)
Quarter: 2023Q4

REPORT INFORMATION
  Report Type: Spontaneous
  Country: JP (occurrence: JP)
  Receive Date: 20231204
  Receipt Date: 20231204
  Transmission Date: 20240109
  Serious: Yes (Hospitalization)
  Sender: FDA-Public Use
  Company Number: JP-STRIDES ARCOLAB LIMITED-2023SP017962

PATIENT
  Age: 31 Month
  Sex: Female
  Weight: 14.4 kg

DRUGS (1)
  1. OLANZAPINE [Suspect]
     Active Substance: OLANZAPINE
     Indication: Product used for unknown indication
     Dosage: UNK (TWO 10 MG OLANZAPINE TABLETS)
     Route: 048

REACTIONS (3)
  - Accidental overdose [Unknown]
  - Altered state of consciousness [Recovered/Resolved]
  - Toxicity to various agents [Unknown]
